FAERS Safety Report 10284244 (Version 8)
Quarter: 2015Q2

REPORT INFORMATION
  Report Type: Spontaneous
  Country: US (occurrence: US)
  Receive Date: 20140708
  Receipt Date: 20150630
  Transmission Date: 20150821
  Serious: Yes (Hospitalization, Other)
  Sender: FDA-Public Use
  Company Number: US-009507513-1407USA003077

PATIENT
  Sex: Female
  Weight: 58.96 kg

DRUGS (6)
  1. FOSAMAX [Suspect]
     Active Substance: ALENDRONATE SODIUM
     Indication: OSTEOPOROSIS
     Dosage: 35 MG, UNK
     Route: 048
     Dates: start: 20020716, end: 20040209
  2. FOSAMAX [Suspect]
     Active Substance: ALENDRONATE SODIUM
     Dosage: 70 MG, UNK
     Route: 048
     Dates: start: 200404, end: 2006
  3. RECLAST [Suspect]
     Active Substance: ZOLEDRONIC ACID
     Indication: OSTEOPOROSIS
     Dosage: UNK
     Dates: start: 2002, end: 2010
  4. BONIVA [Suspect]
     Active Substance: IBANDRONATE SODIUM
     Indication: OSTEOPOROSIS
     Dosage: UNK
     Route: 048
     Dates: start: 2006, end: 2007
  5. RECLAST [Suspect]
     Active Substance: ZOLEDRONIC ACID
     Dosage: 5 MG, UNK
     Route: 042
     Dates: start: 2008, end: 2010
  6. FOSAMAX [Suspect]
     Active Substance: ALENDRONATE SODIUM
     Indication: OSTEOPENIA
     Dosage: UNK
     Route: 048
     Dates: start: 2002, end: 2010

REACTIONS (36)
  - Aphasia [Unknown]
  - Stress fracture [Unknown]
  - Pain [Unknown]
  - Factor V deficiency [Unknown]
  - Vitamin D deficiency [Unknown]
  - Raynaud^s phenomenon [Unknown]
  - Limb asymmetry [Unknown]
  - Dental operation [Unknown]
  - Dental implantation [Unknown]
  - International normalised ratio increased [Recovered/Resolved]
  - Implant site irritation [Unknown]
  - Femur fracture [Unknown]
  - Foot fracture [Unknown]
  - Rib fracture [Unknown]
  - Mixed connective tissue disease [Unknown]
  - Device issue [Unknown]
  - Medical device implantation [Unknown]
  - Fibromyalgia [Unknown]
  - Tooth extraction [Unknown]
  - Protein S deficiency [Unknown]
  - Spinal disorder [Not Recovered/Not Resolved]
  - Intramedullary rod insertion [Unknown]
  - Femur fracture [Unknown]
  - Anaemia postoperative [Unknown]
  - Hypertension [Unknown]
  - Bone graft [Unknown]
  - Rosacea [Unknown]
  - Uterine dilation and curettage [Unknown]
  - Anxiety [Unknown]
  - Pain in extremity [Unknown]
  - Fracture nonunion [Recovered/Resolved]
  - Depression [Unknown]
  - Osteoarthritis [Unknown]
  - Tonsillectomy [Unknown]
  - Insomnia [Unknown]
  - Piriformis syndrome [Unknown]

NARRATIVE: CASE EVENT DATE: 20040520
